FAERS Safety Report 6940249-7 (Version None)
Quarter: 2010Q3

REPORT INFORMATION
  Report Type: 
  Country: None (occurrence: None)
  Receive Date: 20100825
  Receipt Date: 20100813
  Transmission Date: 20110219
  Serious: Yes (Other)
  Sender: FDA-Public Use
  Company Number: US-ELI_LILLY_AND_COMPANY-US201008004059

PATIENT
  Sex: Male

DRUGS (1)
  1. HUMALOG MIX 75/25 [Suspect]

REACTIONS (17)
  - BLOOD GLUCOSE INCREASED [None]
  - DEPRESSION [None]
  - FINGER DEFORMITY [None]
  - FLUID INTAKE REDUCED [None]
  - INSOMNIA [None]
  - MALAISE [None]
  - MENTAL IMPAIRMENT [None]
  - MUSCULOSKELETAL PAIN [None]
  - OEDEMA PERIPHERAL [None]
  - PAIN IN EXTREMITY [None]
  - PROTEINURIA [None]
  - PSORIASIS [None]
  - RENAL FAILURE [None]
  - SKIN DISORDER [None]
  - SWELLING FACE [None]
  - TOOTH LOSS [None]
  - WEIGHT INCREASED [None]
